FAERS Safety Report 23218196 (Version 1)
Quarter: 2023Q4

REPORT INFORMATION
  Report Type: Other
  Country: None (occurrence: US)
  Receive Date: 20231122
  Receipt Date: 20231122
  Transmission Date: 20240110
  Serious: Yes (Hospitalization)
  Sender: FDA-Public Use
  Company Number: US-B.Braun Medical Inc.-2148596

PATIENT
  Age: 4 Month
  Sex: Female

DRUGS (6)
  1. SODIUM CHLORIDE [Suspect]
     Active Substance: SODIUM CHLORIDE
     Indication: Cardiac arrest
  2. CEFTRIAXONE [Suspect]
     Active Substance: CEFTRIAXONE\CEFTRIAXONE SODIUM
  3. EPINEPHRINE [Suspect]
     Active Substance: EPINEPHRINE
  4. CALCIUM GLUCONATE [Suspect]
     Active Substance: CALCIUM GLUCONATE
  5. HYDROCORTISONE [Suspect]
     Active Substance: HYDROCORTISONE
  6. NALOXONE [Suspect]
     Active Substance: NALOXONE

REACTIONS (1)
  - Drug ineffective [None]
